FAERS Safety Report 7047529-8 (Version None)
Quarter: 2010Q4

REPORT INFORMATION
  Report Type: 
  Country: None (occurrence: None)
  Receive Date: 20101015
  Receipt Date: 20101004
  Transmission Date: 20110411
  Serious: Yes (Other)
  Sender: FDA-Public Use
  Company Number: CA-PFIZER INC-2010097442

PATIENT
  Age: 61 Year
  Sex: Female
  Weight: 61.224 kg

DRUGS (7)
  1. DETROL LA [Suspect]
     Indication: BLADDER DISORDER
     Dosage: 4 MG, 1X/DAY
     Route: 048
     Dates: start: 20100617, end: 20100707
  2. DETROL LA [Suspect]
     Dosage: 4 MG, 2X/DAY
     Route: 048
     Dates: start: 20100707, end: 20100712
  3. DETROL LA [Suspect]
     Dosage: 4 MG, UNK
     Route: 048
     Dates: start: 20100730, end: 20100802
  4. FLUOXETINE [Concomitant]
     Dosage: 20 MG, 1X/DAY
  5. AMLODIPINE BESILATE [Concomitant]
     Dosage: 10 MG, 1X/DAY
  6. ADVAIR DISKUS 100/50 [Concomitant]
     Dosage: 1 PUFF, 2X/DAY
     Route: 055
  7. SALBUTAMOL [Concomitant]
     Dosage: 2 PUFFS 4XDAY WHEN NEEDED

REACTIONS (5)
  - COUGH [None]
  - DRUG INEFFECTIVE [None]
  - DYSPNOEA [None]
  - INTERSTITIAL LUNG DISEASE [None]
  - LUNG NEOPLASM [None]
